FAERS Safety Report 5472938-8 (Version None)
Quarter: 2007Q4

REPORT INFORMATION
  Report Type: 
  Country: None (occurrence: None)
  Receive Date: 20071001
  Receipt Date: 20070102
  Transmission Date: 20080405
  Serious: Yes (Hospitalization)
  Sender: FDA-Public Use
  Company Number: US-ASTRAZENECA-2007UW00098

PATIENT
  Age: 64 Year
  Sex: Female
  Weight: 58.4 kg

DRUGS (1)
  1. ARIMIDEX [Suspect]
     Route: 048
     Dates: start: 20061122

REACTIONS (4)
  - BURNING SENSATION [None]
  - CYSTITIS [None]
  - NAUSEA [None]
  - PHARYNGOLARYNGEAL PAIN [None]
